FAERS Safety Report 7818086-0 (Version None)
Quarter: 2011Q4

REPORT INFORMATION
  Report Type: 
  Country: None (occurrence: None)
  Receive Date: 20111017
  Receipt Date: 20111011
  Transmission Date: 20120403
  Serious: Yes (Other)
  Sender: FDA-Public Use
  Company Number: BR-PFIZER INC-2011242623

PATIENT
  Age: 61 Year
  Sex: Female
  Weight: 60 kg

DRUGS (9)
  1. NATRILIX - SLOW RELEASE [Concomitant]
     Indication: DIURETIC THERAPY
     Dosage: 24 MG, 1X/DAY
  2. NAPRIX [Concomitant]
     Indication: FLUID RETENTION
     Dosage: UNK
     Dates: start: 20070101
  3. AAS PROTECT [Concomitant]
     Dosage: UNK
     Dates: start: 20070101
  4. VARENICLINE TARTRATE [Suspect]
     Indication: SMOKING CESSATION THERAPY
     Dosage: UNK
     Route: 048
     Dates: start: 20110101, end: 20110401
  5. ATENOLOL [Concomitant]
     Indication: HYPERTENSION
     Dosage: 100 MG, 1X/DAY
     Dates: start: 20070101
  6. LIPANON [Concomitant]
     Indication: BLOOD CHOLESTEROL
     Dosage: UNK
     Dates: start: 20070101
  7. FLUOXETINE [Concomitant]
     Indication: PROPHYLAXIS
     Dosage: 20 MG, 1X/DAY
  8. OMEPRAZOLE [Concomitant]
     Indication: ABDOMINAL PAIN UPPER
     Dosage: 40 MG, 1X/DAY
  9. LABYRIN [Concomitant]
     Indication: DIZZINESS
     Dosage: UNK
     Dates: start: 20070101

REACTIONS (1)
  - WITHDRAWAL SYNDROME [None]
